FAERS Safety Report 6788862-4 (Version None)
Quarter: 2010Q2

REPORT INFORMATION
  Report Type: 
  Country: None (occurrence: None)
  Receive Date: 20100623
  Receipt Date: 20080725
  Transmission Date: 20101027
  Serious: Yes (Other)
  Sender: FDA-Public Use
  Company Number: US-PFIZER INC-2008023997

PATIENT
  Sex: Female
  Weight: 72.6 kg

DRUGS (19)
  1. SOLU-MEDROL [Suspect]
     Indication: ANAPHYLACTIC REACTION
     Route: 042
     Dates: start: 20071001
  2. SOLU-CORTEF [Suspect]
     Dates: start: 20071001
  3. DIPRIVAN [Suspect]
     Indication: INDUCTION OF ANAESTHESIA
     Route: 042
     Dates: start: 20071001
  4. ROCURONIUM [Suspect]
     Indication: NEUROMUSCULAR BLOCKADE
     Dosage: 5MG/20MG
     Route: 042
     Dates: start: 20071001
  5. SUCCINYLCHOLINE CHLORIDE [Suspect]
     Indication: NEUROMUSCULAR BLOCKADE
     Route: 042
     Dates: start: 20071001
  6. XYLOCAINE [Suspect]
     Indication: LOCAL ANAESTHESIA
     Route: 042
     Dates: start: 20071001
  7. ATROVENT [Concomitant]
     Route: 055
     Dates: start: 20071001
  8. ALL OTHER THERAPEUTIC PRODUCTS [Concomitant]
     Dates: start: 20071001
  9. VANCOMYCIN [Concomitant]
     Dates: start: 20071001
  10. GENTAMICIN [Concomitant]
     Dates: start: 20071001
  11. DECADRON [Concomitant]
     Dates: start: 20071001
  12. BENADRYL [Concomitant]
     Route: 042
     Dates: start: 20071001
  13. ALBUTEROL [Concomitant]
     Dates: start: 20071001
  14. ZANTAC [Concomitant]
     Dates: start: 20071001
  15. EPINEPHRINE [Concomitant]
     Dates: start: 20071001
  16. XOPENEX [Concomitant]
     Route: 055
     Dates: start: 20071001
  17. PLAVIX [Concomitant]
     Dates: start: 20071001
  18. LOVENOX [Concomitant]
     Dates: start: 20071001
  19. BENADRYL [Concomitant]

REACTIONS (2)
  - ANAPHYLACTIC SHOCK [None]
  - PAIN [None]
